FAERS Safety Report 6762053-5 (Version None)
Quarter: 2010Q2

REPORT INFORMATION
  Report Type: 
  Country: None (occurrence: None)
  Receive Date: 20100609
  Receipt Date: 20100601
  Transmission Date: 20101027
  Serious: No
  Sender: FDA-Public Use
  Company Number: US-ROXANE LABORATORIES, INC.-2010-RO-00684RO

PATIENT
  Sex: Female

DRUGS (1)
  1. PREDNISONE [Suspect]
     Indication: CROHN'S DISEASE
     Route: 048
     Dates: end: 19890101

REACTIONS (6)
  - CUSHINGOID [None]
  - OSTEOPOROSIS [None]
  - PHOTOSENSITIVITY REACTION [None]
  - SKIN ATROPHY [None]
  - VEIN DISORDER [None]
  - WEIGHT INCREASED [None]
